FAERS Safety Report 7392890-8 (Version None)
Quarter: 2011Q1

REPORT INFORMATION
  Report Type: 
  Country: None (occurrence: None)
  Receive Date: 20110330
  Receipt Date: 20110330
  Transmission Date: 20110831
  Serious: Yes (Hospitalization)
  Sender: FDA-Public Use
  Company Number: None

PATIENT
  Age: 67 Year
  Sex: Female
  Weight: 63.7 kg

DRUGS (1)
  1. VENOFER [Suspect]
     Indication: JOINT ARTHROPLASTY
     Dosage: 300MG IN 250ML NACL 0.9% ONCE WEEKLYX3 IV DRIP
     Route: 041
     Dates: start: 20110201, end: 20110215

REACTIONS (9)
  - PARAESTHESIA [None]
  - CHEST PAIN [None]
  - DYSPNOEA [None]
  - DIARRHOEA [None]
  - URTICARIA [None]
  - HAEMOLYSIS [None]
  - INJECTION SITE URTICARIA [None]
  - PULMONARY EMBOLISM [None]
  - CARDIAC DISORDER [None]
